FAERS Safety Report 20155612 (Version 9)
Quarter: 2024Q2

REPORT INFORMATION
  Report Type: Spontaneous
  Country: US (occurrence: US)
  Receive Date: 20211207
  Receipt Date: 20240503
  Transmission Date: 20240716
  Serious: Yes (Other)
  Sender: FDA-Public Use
  Company Number: US-PFIZER INC-202101638812

PATIENT
  Age: 65 Year
  Sex: Male

DRUGS (3)
  1. EUCRISA [Suspect]
     Active Substance: CRISABOROLE
     Indication: Allergy to metals
     Dosage: APPLY TOPICALLY TO BOTH HANDS DAILY
     Route: 061
     Dates: start: 2018
  2. EUCRISA [Suspect]
     Active Substance: CRISABOROLE
     Indication: Dermatitis contact
     Dosage: 20 MG, 1X/DAY
  3. EUCRISA [Suspect]
     Active Substance: CRISABOROLE
     Dosage: 20 MG, 2X/DAY (TWICE IF NECESSARY)

REACTIONS (4)
  - Glaucoma [Not Recovered/Not Resolved]
  - Drug effective for unapproved indication [Unknown]
  - Off label use [Unknown]
  - Off label use [Unknown]

NARRATIVE: CASE EVENT DATE: 20230101
